FAERS Safety Report 20003875 (Version 6)
Quarter: 2022Q1

REPORT INFORMATION
  Report Type: Report from Study
  Country: JP (occurrence: JP)
  Receive Date: 20211027
  Receipt Date: 20220208
  Transmission Date: 20220423
  Serious: Yes (Death, Hospitalization)
  Sender: FDA-Public Use
  Company Number: JP-PFIZER INC-202101396444

PATIENT
  Age: 74 Year
  Sex: Male
  Weight: 69 kg

DRUGS (23)
  1. TALAZOPARIB [Suspect]
     Active Substance: TALAZOPARIB
     Indication: Prostate cancer metastatic
     Dosage: UNK, 1X/DAY
     Route: 048
     Dates: start: 20210515, end: 20210712
  2. ENZALUTAMIDE [Suspect]
     Active Substance: ENZALUTAMIDE
     Indication: Prostate cancer metastatic
     Dosage: 160 MG, 1X/DAY
     Route: 048
     Dates: start: 20201228, end: 20210712
  3. ENZALUTAMIDE [Suspect]
     Active Substance: ENZALUTAMIDE
     Dosage: 80 MG, 1X/DAY
     Route: 048
     Dates: start: 20210811, end: 20211017
  4. CANDESARTAN CILEXETIL\HYDROCHLOROTHIAZIDE [Concomitant]
     Active Substance: CANDESARTAN CILEXETIL\HYDROCHLOROTHIAZIDE
     Indication: Hypertension
     Dosage: 1 TABLET, QD, CADETHIA COMBINATION TABLET LD
     Route: 048
     Dates: start: 20210731
  5. CYANOCOBALAMIN [Concomitant]
     Active Substance: CYANOCOBALAMIN
     Indication: Asthenopia
     Dosage: UNK, PRN
     Route: 061
     Dates: start: 2010
  6. HYALURONATE SODIUM [Concomitant]
     Active Substance: HYALURONATE SODIUM
     Indication: Dry eye
     Dosage: PRN, PURIFIED SODIUM HYALURONATE
     Route: 061
     Dates: start: 2010
  7. UREA [Concomitant]
     Active Substance: UREA
     Indication: Pruritus
     Dosage: UNK, PRN
     Route: 061
     Dates: start: 202010
  8. PARAFFIN [Concomitant]
     Active Substance: PARAFFIN
     Indication: Pruritus
     Dosage: UNK, PRN
     Route: 061
     Dates: start: 202010
  9. BETAMETHASONE BUTYRATE PROPIONATE [Concomitant]
     Active Substance: BETAMETHASONE BUTYRATE PROPIONATE
     Indication: Pruritus
     Dosage: UNK, PRN
     Route: 061
     Dates: start: 202010
  10. ACITAZANOLAST HYDRATE [Concomitant]
     Indication: Seasonal allergy
     Dosage: UNK, PRN
     Route: 061
     Dates: start: 202002
  11. LEVOCABASTINE HYDROCHLORIDE [Concomitant]
     Active Substance: LEVOCABASTINE HYDROCHLORIDE
     Indication: Seasonal allergy
     Dosage: UNK, PRN
     Route: 061
     Dates: start: 202002
  12. FEXOFENADINE HYDROCHLORIDE [Concomitant]
     Active Substance: FEXOFENADINE HYDROCHLORIDE
     Indication: Seasonal allergy
     Dosage: UNK, PRN
     Route: 061
     Dates: start: 202002
  13. LEUPROLIDE ACETATE [Concomitant]
     Active Substance: LEUPROLIDE ACETATE
     Indication: Oestrogen replacement therapy
     Dosage: 22.5 MG, Q6M
     Route: 058
     Dates: start: 20210112
  14. MAGNESIUM OXIDE [Concomitant]
     Active Substance: MAGNESIUM OXIDE
     Indication: Constipation
     Dosage: 330 MG, PRN
     Route: 048
     Dates: start: 20210405
  15. PREGABALIN [Concomitant]
     Active Substance: PREGABALIN
     Indication: Spinal osteoarthritis
     Dosage: 75 MG, 2X/DAY
     Route: 048
     Dates: start: 20210512
  16. LOXOPROFEN SODIUM DIHYDRATE [Concomitant]
     Active Substance: LOXOPROFEN SODIUM DIHYDRATE
     Indication: Spinal compression fracture
     Dosage: 60 MG, 3X/DAY
     Route: 048
     Dates: start: 20210608
  17. EPERISONE HYDROCHLORIDE [Concomitant]
     Active Substance: EPERISONE HYDROCHLORIDE
     Indication: Spinal compression fracture
     Dosage: 50 MG, 3X/DAY
     Route: 048
     Dates: start: 20210608
  18. REBAMIPIDE [Concomitant]
     Active Substance: REBAMIPIDE
     Indication: Spinal compression fracture
     Dosage: 100 MG, 3X/DAY
     Route: 048
     Dates: start: 20210608
  19. DIMETHYL ISOPROPYLAZULENE [Concomitant]
     Indication: Decubitus ulcer
     Dosage: 1 AS NEEDED
     Route: 061
     Dates: start: 20210717
  20. BORRAGINOL A [ALLANTOIN;LIDOCAINE;PREDNISOLONE ACETATE;TOCOPHEROL] [Concomitant]
     Indication: Haemorrhoids
     Dosage: 1, AS NEEDED
     Route: 061
     Dates: start: 20210721
  21. LULICONAZOLE [Concomitant]
     Active Substance: LULICONAZOLE
     Indication: Tinea infection
     Dosage: 1, AS NEEDED
     Route: 061
     Dates: start: 20211007
  22. LULICONAZOLE [Concomitant]
     Active Substance: LULICONAZOLE
     Indication: Tinea infection
     Dosage: 1, AS NEEDED, SOLUTION
     Route: 061
     Dates: start: 20211007
  23. BETAMETHASONE BUTYRATE PROPIONATE [Concomitant]
     Active Substance: BETAMETHASONE BUTYRATE PROPIONATE
     Indication: Tinea infection
     Dosage: 1, AS NEEDED
     Route: 061
     Dates: start: 20211007

REACTIONS (4)
  - Abscess [Not Recovered/Not Resolved]
  - Cerebral infarction [Fatal]
  - Sepsis [Fatal]
  - Acute kidney injury [Not Recovered/Not Resolved]

NARRATIVE: CASE EVENT DATE: 20211018
